FAERS Safety Report 12522154 (Version 2)
Quarter: 2017Q2

REPORT INFORMATION
  Report Type: Spontaneous
  Country: US (occurrence: US)
  Receive Date: 20160701
  Receipt Date: 20170417
  Transmission Date: 20170830
  Serious: No
  Sender: FDA-Public Use
  Company Number: US-INCYTE CORPORATION-2016IN003797

PATIENT
  Age: 83 Year
  Sex: Male

DRUGS (1)
  1. JAKAFI [Suspect]
     Active Substance: RUXOLITINIB
     Indication: MYELOFIBROSIS
     Dosage: 15 MG, BID
     Route: 048
     Dates: start: 20160607

REACTIONS (7)
  - Malaise [Unknown]
  - Poor quality sleep [Unknown]
  - Fatigue [Not Recovered/Not Resolved]
  - Muscle spasms [Unknown]
  - Weight increased [Unknown]
  - Increased appetite [Unknown]
  - Asthenia [Recovering/Resolving]

NARRATIVE: CASE EVENT DATE: 20160620
